FAERS Safety Report 4752716-5 (Version None)
Quarter: 2005Q3

REPORT INFORMATION
  Report Type: 
  Country: None (occurrence: None)
  Receive Date: 20050823
  Receipt Date: 20050512
  Transmission Date: 20060218
  Serious: Yes (Other)
  Sender: FDA-Public Use
  Company Number: 2005073646

PATIENT
  Sex: Female

DRUGS (2)
  1. NORVASC [Suspect]
     Indication: ILL-DEFINED DISORDER
     Dosage: (5 MG)
  2. ANGIOTENSIN II ANTAGONISTS (ANGIOTENSIN II ANTAGONISTS) [Concomitant]

REACTIONS (2)
  - SOMNOLENCE [None]
  - SYNCOPE [None]
